FAERS Safety Report 6249522-1 (Version None)
Quarter: 2009Q2

REPORT INFORMATION
  Report Type: 
  Country: None (occurrence: None)
  Receive Date: 20090624
  Receipt Date: 20090616
  Transmission Date: 20091009
  Serious: Yes (Hospitalization)
  Sender: FDA-Public Use
  Company Number: WAES 0904HUN00014

PATIENT
  Age: 68 Year
  Sex: Female

DRUGS (7)
  1. COZAAR [Suspect]
     Indication: CARDIAC FAILURE
     Dosage: PO
     Route: 048
     Dates: start: 20041209
  2. ALENDRONATE SODIUM [Concomitant]
  3. ASPIRIN [Concomitant]
  4. ATORVASTATIN SODIUM [Concomitant]
  5. CARVEDILOL [Concomitant]
  6. CLOPIDOGREL BISULFATE [Concomitant]
  7. PHENOBARBITAL [Concomitant]

REACTIONS (3)
  - CARDIAC FAILURE [None]
  - CONDITION AGGRAVATED [None]
  - SUPRAVENTRICULAR TACHYCARDIA [None]
